FAERS Safety Report 6356255-X (Version None)
Quarter: 2009Q3

REPORT INFORMATION
  Report Type: 
  Country: None (occurrence: None)
  Receive Date: 20090915
  Receipt Date: 20090901
  Transmission Date: 20100115
  Serious: Yes (Hospitalization)
  Sender: FDA-Public Use
  Company Number: GB-TYCO HEALTHCARE/MALLINCKRODT-T200901631

PATIENT
  Age: 90 Year
  Sex: Female

DRUGS (4)
  1. TRAMADOL HCL [Suspect]
     Indication: ANALGESIA
     Dosage: 50 MG, QID
  2. WARFARIN SODIUM [Suspect]
     Indication: ATRIAL FIBRILLATION
     Dosage: 5 MG, QD (QHS)
  3. BENDROFLUMETHIAZIDE [Suspect]
     Indication: HYPERTENSION
     Dosage: 2.5 MG, QD
  4. PARACETAMOL [Concomitant]
     Indication: ANALGESIA
     Dosage: 1 G, QD

REACTIONS (3)
  - DELIRIUM [None]
  - FALL [None]
  - HAEMATOMA [None]
